FAERS Safety Report 8031410-1 (Version None)
Quarter: 2012Q1

REPORT INFORMATION
  Report Type: 
  Country: None (occurrence: None)
  Receive Date: 20120109
  Receipt Date: 20120107
  Transmission Date: 20120608
  Serious: Yes (Death)
  Sender: FDA-Public Use
  Company Number: TR-ABBOTT-12P-161-0890122-00

PATIENT
  Age: 84 Year
  Sex: Female
  Weight: 50 kg

DRUGS (5)
  1. BEMIKS [Concomitant]
     Indication: CARDIAC DISORDER
     Route: 048
     Dates: start: 20060101, end: 20111230
  2. CARVEDILOL [Concomitant]
     Indication: CARDIAC DISORDER
     Route: 048
     Dates: start: 20060101, end: 20111230
  3. ECOPIRIN [Concomitant]
     Indication: CARDIAC DISORDER
     Route: 048
     Dates: start: 20060101, end: 20111230
  4. FOLIC ACID [Concomitant]
     Indication: CARDIAC DISORDER
     Route: 048
     Dates: start: 20060101, end: 20111230
  5. ZEMPLAR [Suspect]
     Indication: HYPERPARATHYROIDISM
     Route: 042
     Dates: end: 20111230

REACTIONS (2)
  - CARDIAC DISORDER [None]
  - MALNUTRITION [None]
